FAERS Safety Report 5669609-1 (Version None)
Quarter: 2008Q1

REPORT INFORMATION
  Report Type: 
  Country: None (occurrence: None)
  Receive Date: 20080317
  Receipt Date: 20080304
  Transmission Date: 20080703
  Serious: Yes (Death, Hospitalization)
  Sender: FDA-Public Use
  Company Number: US-AMGEN-US266923

PATIENT
  Sex: Male

DRUGS (4)
  1. PANITUMUMAB [Suspect]
     Indication: COLORECTAL CANCER
     Route: 042
     Dates: start: 20070918
  2. IRINOTECAN HCL [Suspect]
     Route: 065
  3. FLUOROURACIL [Suspect]
     Route: 065
  4. LEUCOVORIN CALCIUM [Concomitant]
     Route: 065

REACTIONS (7)
  - ASTHENIA [None]
  - AZOTAEMIA [None]
  - BREATH SOUNDS ABNORMAL [None]
  - DIARRHOEA [None]
  - FATIGUE [None]
  - METABOLIC ACIDOSIS [None]
  - RENAL FAILURE [None]
